FAERS Safety Report 18662223 (Version 1)
Quarter: 2020Q4

REPORT INFORMATION
  Report Type: Report from Study
  Country: ES (occurrence: ES)
  Receive Date: 20201224
  Receipt Date: 20201224
  Transmission Date: 20210114
  Serious: Yes (Other)
  Sender: FDA-Public Use
  Company Number: ES-JNJFOC-20201232334

PATIENT

DRUGS (3)
  1. TREMFYA [Suspect]
     Active Substance: GUSELKUMAB
     Indication: PSORIASIS
     Route: 065
  2. TREMFYA [Suspect]
     Active Substance: GUSELKUMAB
  3. TREMFYA [Suspect]
     Active Substance: GUSELKUMAB

REACTIONS (28)
  - COVID-19 pneumonia [Unknown]
  - Pancreatitis acute [Unknown]
  - Administration site reaction [Unknown]
  - Immune system disorder [Unknown]
  - Pneumonia [Unknown]
  - Skin lesion [Unknown]
  - Infection [Unknown]
  - Musculoskeletal disorder [Unknown]
  - Inner ear disorder [Unknown]
  - Nervous system disorder [Unknown]
  - Respiratory disorder [Unknown]
  - Cardiac disorder [Unknown]
  - Drug ineffective [Unknown]
  - Skin disorder [Unknown]
  - Pneumonia pneumococcal [Unknown]
  - Angiopathy [Unknown]
  - Neoplasm malignant [Unknown]
  - Hip fracture [Unknown]
  - Pneumonia viral [Unknown]
  - Metabolic disorder [Unknown]
  - Herpes zoster [Unknown]
  - Type 2 diabetes mellitus [Unknown]
  - Hand dermatitis [Unknown]
  - Coronavirus infection [Unknown]
  - Hepatic enzyme increased [Unknown]
  - Obesity [Unknown]
  - Gastrointestinal disorder [Unknown]
  - Renal disorder [Unknown]
